FAERS Safety Report 8163770-5 (Version None)
Quarter: 2012Q1

REPORT INFORMATION
  Report Type: 
  Country: None (occurrence: None)
  Receive Date: 20120221
  Receipt Date: 20120207
  Transmission Date: 20120608
  Serious: Yes (Other)
  Sender: FDA-Public Use
  Company Number: 2012AP000324

PATIENT
  Age: 80 Year
  Sex: Male

DRUGS (8)
  1. LAMOTRIGINE [Suspect]
     Indication: EPILEPSY
     Dosage: 25 MG, QD
  2. DOUBLEBASE (HYDROMOL) [Concomitant]
  3. FINASTERIDE [Concomitant]
  4. LATANOPROST [Concomitant]
  5. TAMSULOSIN HCL [Concomitant]
  6. LEVOTHYROXINE SODIUM [Concomitant]
  7. RAMIPRIL [Suspect]
     Indication: HYPERTENSION
     Dosage: 1.25 MG, PO, QD
     Route: 048
  8. WARFARIN SODIUM [Concomitant]

REACTIONS (1)
  - MYELODYSPLASTIC SYNDROME [None]
